FAERS Safety Report 14185830 (Version 1)
Quarter: 2017Q4

REPORT INFORMATION
  Report Type: Spontaneous
  Country: SE (occurrence: SE)
  Receive Date: 20171114
  Receipt Date: 20171114
  Transmission Date: 20180321
  Serious: Yes (Death, Hospitalization, Other)
  Sender: FDA-Public Use
  Company Number: SE-ALVOGEN-2017-ALVOGEN-094020

PATIENT
  Age: 30 Year
  Sex: Female
  Weight: 106 kg

DRUGS (3)
  1. PARACETAMOL [Suspect]
     Active Substance: ACETAMINOPHEN
     Indication: PRODUCT USED FOR UNKNOWN INDICATION
     Dosage: 40 TABLETS
     Route: 048
  2. ACETYLCYSTEINE. [Suspect]
     Active Substance: ACETYLCYSTEINE
     Indication: TOXICITY TO VARIOUS AGENTS
     Dosage: NAC 800 ML WERE ADDED TO 300 ML SALINE. TOTAL 1100 ML FLUID WAS GIVEN.
  3. ALCOHOL. [Suspect]
     Active Substance: ALCOHOL
     Indication: PRODUCT USED FOR UNKNOWN INDICATION

REACTIONS (5)
  - Anaphylactic shock [Fatal]
  - Dose calculation error [Fatal]
  - Overdose [Fatal]
  - Ventricular fibrillation [Fatal]
  - Toxicity to various agents [Fatal]
